FAERS Safety Report 4836258-4 (Version None)
Quarter: 2005Q4

REPORT INFORMATION
  Report Type: 
  Country: None (occurrence: None)
  Receive Date: 20051121
  Receipt Date: 20051121
  Transmission Date: 20060501
  Serious: Yes (Hospitalization)
  Sender: FDA-Public Use
  Company Number: None

PATIENT
  Age: 70 Year
  Sex: Male
  Weight: 67.8 kg

DRUGS (1)
  1. SPIRONOLACTONE [Suspect]
     Indication: CARDIAC FAILURE CONGESTIVE
     Dosage: 50 MG    ONCE DAILY  PO
     Route: 048

REACTIONS (2)
  - RENAL FAILURE ACUTE [None]
  - SIMILAR REACTION ON PREVIOUS EXPOSURE TO DRUG [None]
